FAERS Safety Report 11991088 (Version 1)
Quarter: 2016Q1

REPORT INFORMATION
  Report Type: Spontaneous
  Country: US (occurrence: None)
  Receive Date: 20160202
  Receipt Date: 20160202
  Transmission Date: 20160526
  Serious: Yes (Death, Life-Threatening, Hospitalization, Disabling)
  Sender: FDA-Public Use
  Company Number: None

PATIENT
  Age: 79 Year
  Sex: Male
  Weight: 58.97 kg

DRUGS (6)
  1. PHENERGAN [Suspect]
     Active Substance: PROMETHAZINE HYDROCHLORIDE
     Indication: NAUSEA
     Dosage: 1 PILL ONE DOSE TAKEN BY MOUTH
     Route: 048
     Dates: start: 20140424, end: 20140424
  2. MAGNESIUM [Concomitant]
     Active Substance: MAGNESIUM
  3. VITAMINS [Concomitant]
     Active Substance: VITAMINS
  4. ANTACIDS [Concomitant]
     Active Substance: UNSPECIFIED INGREDIENT
  5. CALCIUM CHEWS [Concomitant]
  6. PHENERGAN [Suspect]
     Active Substance: PROMETHAZINE HYDROCHLORIDE
     Indication: VOMITING
     Dosage: 1 PILL ONE DOSE TAKEN BY MOUTH
     Route: 048
     Dates: start: 20140424, end: 20140424

REACTIONS (4)
  - Respiratory arrest [None]
  - Nervous system disorder [None]
  - Aphasia [None]
  - Seizure [None]

NARRATIVE: CASE EVENT DATE: 20140424
